FAERS Safety Report 4919151-8 (Version None)
Quarter: 2006Q1

REPORT INFORMATION
  Report Type: 
  Country: None (occurrence: None)
  Receive Date: 20060222
  Receipt Date: 20060213
  Transmission Date: 20060701
  Serious: Yes (Other)
  Sender: FDA-Public Use
  Company Number: US-AVENTIS-200611582US

PATIENT
  Sex: Male
  Weight: 61.4 kg

DRUGS (3)
  1. LANTUS [Suspect]
     Indication: DIABETES MELLITUS
     Dosage: DOSE: 15 IN AM AND 10 AT NIGHT; DOSE UNIT: UNITS
     Dates: start: 20051201, end: 20060215
  2. LANTUS [Suspect]
     Dates: start: 20060215
  3. HUMALOG [Concomitant]
     Dosage: DOSE: COVERAGE

REACTIONS (3)
  - BLOOD GLUCOSE FLUCTUATION [None]
  - HYPOGLYCAEMIA [None]
  - LOSS OF CONSCIOUSNESS [None]
